FAERS Safety Report 16109199 (Version 1)
Quarter: 2019Q1

REPORT INFORMATION
  Report Type: Spontaneous
  Country: US (occurrence: US)
  Receive Date: 20190323
  Receipt Date: 20190323
  Transmission Date: 20190418
  Serious: No
  Sender: FDA-Public Use
  Company Number: US-THERAPEUTICSMD-2019TMD00206

PATIENT
  Sex: Female

DRUGS (4)
  1. IMVEXXY [Suspect]
     Active Substance: ESTRADIOL
     Indication: VULVOVAGINAL DRYNESS
     Dosage: 10 ?G BEFORE BED
     Route: 067
     Dates: end: 201902
  2. IMVEXXY [Suspect]
     Active Substance: ESTRADIOL
     Indication: GENITAL RASH
     Dosage: 4 ?G, 2X/WEEK AT BEDTIME (MONDAY AND THURSDAY)
     Route: 067
     Dates: start: 201902
  3. IMVEXXY [Suspect]
     Active Substance: ESTRADIOL
     Indication: GENITAL RASH
  4. IMVEXXY [Suspect]
     Active Substance: ESTRADIOL
     Indication: VULVOVAGINAL DRYNESS
     Dosage: 4 ?G, EVERY 96 HOURS BEFORE BED
     Route: 067
     Dates: start: 201902, end: 201902

REACTIONS (6)
  - Crying [Recovered/Resolved]
  - Emotional disorder [Recovered/Resolved]
  - Therapeutic response unexpected [Recovered/Resolved]
  - Headache [Recovered/Resolved]
  - Drug ineffective for unapproved indication [Recovered/Resolved]
  - Off label use [Not Recovered/Not Resolved]

NARRATIVE: CASE EVENT DATE: 201902
